FAERS Safety Report 15801484 (Version 1)
Quarter: 2019Q1

REPORT INFORMATION
  Report Type: Spontaneous
  Country: ES (occurrence: ES)
  Receive Date: 20190109
  Receipt Date: 20190109
  Transmission Date: 20190417
  Serious: Yes (Life-Threatening, Hospitalization, Other)
  Sender: FDA-Public Use
  Company Number: ES-AUROBINDO-AUR-APL-2014-13212

PATIENT
  Age: 22 Year
  Sex: Male

DRUGS (8)
  1. IBUPROFEN. [Suspect]
     Active Substance: IBUPROFEN
     Indication: ARTHRALGIA
  2. ACETAMINOPHEN. [Suspect]
     Active Substance: ACETAMINOPHEN
     Indication: TEMPERATURE REGULATION DISORDER
  3. ACETAMINOPHEN. [Suspect]
     Active Substance: ACETAMINOPHEN
     Indication: HEADACHE
  4. ACETAMINOPHEN. [Suspect]
     Active Substance: ACETAMINOPHEN
     Indication: MYALGIA
     Dosage: 1 DOSAGE FORM
     Route: 048
  5. ACETAMINOPHEN. [Suspect]
     Active Substance: ACETAMINOPHEN
     Indication: ARTHRALGIA
  6. IBUPROFEN. [Suspect]
     Active Substance: IBUPROFEN
     Indication: TEMPERATURE REGULATION DISORDER
     Dosage: 1200 MG, TOTAL
     Route: 065
  7. IBUPROFEN. [Suspect]
     Active Substance: IBUPROFEN
     Indication: HEADACHE
  8. IBUPROFEN. [Suspect]
     Active Substance: IBUPROFEN
     Indication: MYALGIA

REACTIONS (25)
  - Pyrexia [Unknown]
  - Hepatic failure [Recovering/Resolving]
  - Respiratory failure [Recovering/Resolving]
  - Eosinophilia [Unknown]
  - Blood glucose increased [Unknown]
  - C-reactive protein increased [Unknown]
  - Gamma-glutamyltransferase increased [Unknown]
  - Blood bilirubin increased [Unknown]
  - Ammonia increased [Unknown]
  - Prothrombin time shortened [Unknown]
  - Skin infection [Unknown]
  - Pleural effusion [Recovering/Resolving]
  - Phlebitis [Unknown]
  - Rash macular [Unknown]
  - Blood alkaline phosphatase increased [Unknown]
  - Idiosyncratic drug reaction [Recovering/Resolving]
  - Hepatomegaly [Recovering/Resolving]
  - Alanine aminotransferase increased [Unknown]
  - Hepatic encephalopathy [Recovering/Resolving]
  - Toxicity to various agents [Recovering/Resolving]
  - Drug reaction with eosinophilia and systemic symptoms [Recovering/Resolving]
  - Metabolic acidosis [Recovering/Resolving]
  - Thrombocytopenia [Recovering/Resolving]
  - Aspartate aminotransferase increased [Unknown]
  - White blood cell count increased [Unknown]
